FAERS Safety Report 14226792 (Version 1)
Quarter: 2017Q4

REPORT INFORMATION
  Report Type: Spontaneous
  Country: CA (occurrence: CA)
  Receive Date: 20171127
  Receipt Date: 20171127
  Transmission Date: 20180321
  Serious: Yes (Other)
  Sender: FDA-Public Use
  Company Number: CA-CELLTRION HEALTHCARE HUNGARY KFT-2016CA010755

PATIENT

DRUGS (12)
  1. DIAZEPAM. [Concomitant]
     Active Substance: DIAZEPAM
     Dosage: UNK, AS NEEDED
  2. INFLECTRA [Suspect]
     Active Substance: INFLIXIMAB-DYYB
     Dosage: 567 MG  (7MG/KG) THEN EVERY 6 WEEKS
     Route: 042
     Dates: start: 20160527, end: 20170919
  3. INFLECTRA [Suspect]
     Active Substance: INFLIXIMAB-DYYB
     Indication: RHEUMATOID ARTHRITIS
     Dosage: 229.8 MG, CYCLIC (WEEKS 0.2,6 THEN EVERY 8 WEEKS FOR 6 MONTHS)
     Route: 042
     Dates: start: 20160628
  4. INFLECTRA [Suspect]
     Active Substance: INFLIXIMAB-DYYB
     Dosage: 405MG (5MG/KG) EVERY 6 WEEKS
     Route: 042
     Dates: start: 20171031
  5. VITAMIN B12 [Concomitant]
     Active Substance: CYANOCOBALAMIN
     Dosage: 5000 UG, UNK
     Route: 060
  6. INFLECTRA [Suspect]
     Active Substance: INFLIXIMAB-DYYB
     Dosage: 395 MG, CYCLIC (THEN EVERY 6 WEEKS FOR 6 MONTHS)
     Route: 042
  7. METHOTREXATE. [Concomitant]
     Active Substance: METHOTREXATE
     Dosage: UNK, INJECTION
     Dates: start: 2007
  8. FOLIC ACID. [Concomitant]
     Active Substance: FOLIC ACID
     Dosage: UNK
  9. MORPHINE [Concomitant]
     Active Substance: MORPHINE
     Dosage: UNK, AS NEEDED
  10. NORFLOXACIN [Concomitant]
     Active Substance: NORFLOXACIN
     Dosage: 400 MG, BID
     Dates: start: 20170622
  11. INFLECTRA [Suspect]
     Active Substance: INFLIXIMAB-DYYB
     Dosage: 395 MG, CYCLIC (THEN EVERY 6 WEEKS FOR 6 MONTHS)
     Route: 042
  12. NAPROXEN. [Concomitant]
     Active Substance: NAPROXEN
     Dosage: 500 MG, AS NEEDED

REACTIONS (9)
  - Feeling abnormal [Unknown]
  - Drug effect incomplete [Unknown]
  - Product use issue [Unknown]
  - Pain in extremity [Unknown]
  - Insomnia [Recovered/Resolved]
  - Headache [Recovering/Resolving]
  - Abdominal discomfort [Unknown]
  - Joint swelling [Unknown]
  - Blood pressure increased [Unknown]

NARRATIVE: CASE EVENT DATE: 20160628
